FAERS Safety Report 8469996-5 (Version None)
Quarter: 2012Q2

REPORT INFORMATION
  Report Type: 
  Country: None (occurrence: None)
  Receive Date: 20120627
  Receipt Date: 20120619
  Transmission Date: 20120825
  Serious: No
  Sender: FDA-Public Use
  Company Number: US-BIOGENIDEC-2012BI021636

PATIENT
  Sex: Male

DRUGS (2)
  1. TYSABRI [Suspect]
     Indication: MULTIPLE SCLEROSIS
     Route: 042
     Dates: start: 20100910, end: 20101115
  2. TYSABRI [Suspect]
     Route: 042
     Dates: start: 20110909, end: 20120323

REACTIONS (2)
  - MEMORY IMPAIRMENT [None]
  - COGNITIVE DISORDER [None]
